FAERS Safety Report 24692508 (Version 1)
Quarter: 2024Q4

REPORT INFORMATION
  Report Type: Spontaneous
  Country: US (occurrence: None)
  Receive Date: 20241203
  Receipt Date: 20241203
  Transmission Date: 20250115
  Serious: Yes (Hospitalization)
  Sender: Public
  Company Number: None

PATIENT
  Age: 68 Year
  Sex: Male
  Weight: 129 kg

DRUGS (2)
  1. ELIQUIS [Suspect]
     Active Substance: APIXABAN
     Indication: Atrial fibrillation
     Dosage: 5.00 MG TWICE A DAY ORAL?
     Route: 048
     Dates: start: 20220111
  2. ASPIRIN [Suspect]
     Active Substance: ASPIRIN
     Indication: Cardiac operation
     Dosage: 81.00 MG DAILY ORAL
     Route: 048
     Dates: end: 20240815

REACTIONS (5)
  - Hypotension [None]
  - Haematochezia [None]
  - Gastritis [None]
  - Gastrointestinal haemorrhage [None]
  - Arteriovenous malformation [None]

NARRATIVE: CASE EVENT DATE: 20240815
